FAERS Safety Report 5120978-0 (Version None)
Quarter: 2006Q4

REPORT INFORMATION
  Report Type: 
  Country: None (occurrence: None)
  Receive Date: 20061002
  Receipt Date: 20060803
  Transmission Date: 20070319
  Serious: Yes (Other)
  Sender: FDA-Public Use
  Company Number: CHPA2006US07922

PATIENT
  Sex: Female

DRUGS (1)
  1. TRANSDERM SCOP [Suspect]
     Dosage: 1.5 MG, TRANSDERMAL
     Route: 062

REACTIONS (2)
  - ASTHENIA [None]
  - SEDATION [None]
